FAERS Safety Report 19037855 (Version 2)
Quarter: 2021Q1

REPORT INFORMATION
  Report Type: Spontaneous
  Country: US (occurrence: US)
  Receive Date: 20210322
  Receipt Date: 20210325
  Transmission Date: 20210420
  Serious: Yes (Other)
  Sender: FDA-Public Use
  Company Number: US-JNJFOC-20210330222

PATIENT
  Age: 33 Year

DRUGS (2)
  1. STELARA [Suspect]
     Active Substance: USTEKINUMAB
     Indication: CROHN^S DISEASE
     Route: 058
  2. STELARA [Suspect]
     Active Substance: USTEKINUMAB
     Route: 058
     Dates: start: 202103

REACTIONS (4)
  - Off label use [Unknown]
  - Crohn^s disease [Unknown]
  - Therapeutic product effect decreased [Unknown]
  - Product use issue [Unknown]

NARRATIVE: CASE EVENT DATE: 202103
